FAERS Safety Report 9746316 (Version 3)
Quarter: 2014Q1

REPORT INFORMATION
  Report Type: Spontaneous
  Country: DE (occurrence: None)
  Receive Date: 20131205
  Receipt Date: 20140204
  Transmission Date: 20141002
  Serious: Yes (Life-Threatening, Hospitalization, Other)
  Sender: FDA-Public Use
  Company Number: 2013DE002854

PATIENT
  Age: 73 Year
  Sex: Male
  Weight: 68 kg

DRUGS (6)
  1. ICLUSIG [Suspect]
     Indication: CHRONIC MYELOID LEUKAEMIA
     Route: 048
     Dates: start: 20131007, end: 20131022
  2. ICLUSIG [Suspect]
     Route: 048
     Dates: start: 20131007, end: 20131022
  3. BISOPROLOL ( BISOPROLOL FUMARATE) [Concomitant]
  4. RAMIPRIL ( RAMIPRIL) [Concomitant]
  5. GINKO ( GINKGO BILOBA) [Concomitant]
  6. ZOPICLON ( ZOPICLONE) [Concomitant]

REACTIONS (5)
  - Cerebrovascular accident [None]
  - Disorientation [None]
  - Aggression [None]
  - Hemiplegia [None]
  - Mental status changes [None]
